FAERS Safety Report 7332270-4 (Version None)
Quarter: 2011Q1

REPORT INFORMATION
  Report Type: 
  Country: None (occurrence: None)
  Receive Date: 20110304
  Receipt Date: 20110228
  Transmission Date: 20110831
  Serious: Yes (Death, Life-Threatening)
  Sender: FDA-Public Use
  Company Number: DE-JNJFOC-20110208243

PATIENT
  Age: 83 Year
  Sex: Male

DRUGS (11)
  1. HALDOL [Suspect]
     Indication: PRODUCT USED FOR UNKNOWN INDICATION
     Route: 042
     Dates: start: 20100215
  2. SEROQUEL [Suspect]
     Indication: PRODUCT USED FOR UNKNOWN INDICATION
     Route: 048
     Dates: start: 20100210, end: 20100212
  3. FENTANYL [Suspect]
     Route: 062
  4. LYRICA [Suspect]
     Indication: PRODUCT USED FOR UNKNOWN INDICATION
     Route: 048
     Dates: start: 20100211, end: 20100213
  5. FUROSEMID [Concomitant]
     Route: 048
     Dates: start: 20100213
  6. JONOSTERIL S [Concomitant]
     Route: 042
     Dates: start: 20100213
  7. TOREM [Concomitant]
     Indication: HYPERTENSION
     Route: 065
  8. FENTANYL [Suspect]
     Route: 062
  9. FENTANYL [Suspect]
     Indication: PRODUCT USED FOR UNKNOWN INDICATION
     Route: 062
  10. CLEXANE [Concomitant]
     Route: 058
     Dates: start: 20100210
  11. LORZAAR [Concomitant]
     Indication: HYPERTENSION
     Route: 065

REACTIONS (8)
  - CYANOSIS [None]
  - DEATH [None]
  - LUNG DISORDER [None]
  - PAIN IN EXTREMITY [None]
  - RHONCHI [None]
  - PYREXIA [None]
  - BLOOD PRESSURE DECREASED [None]
  - GENERAL PHYSICAL HEALTH DETERIORATION [None]
